FAERS Safety Report 5842819-6 (Version None)
Quarter: 2008Q3

REPORT INFORMATION
  Report Type: 
  Country: None (occurrence: None)
  Receive Date: 20080811
  Receipt Date: 20080801
  Transmission Date: 20090109
  Serious: Yes (Other)
  Sender: FDA-Public Use
  Company Number: 2008SP012745

PATIENT
  Age: 53 Year
  Sex: Female

DRUGS (10)
  1. INTRON A [Suspect]
     Indication: MALIGNANT MELANOMA
     Dosage: 36 MIU;QD;IV
     Route: 042
     Dates: start: 20080218, end: 20080222
  2. INTRON A [Suspect]
     Indication: MALIGNANT MELANOMA
     Dosage: 36 MIU;QD;IV
     Route: 042
     Dates: start: 20080225, end: 20080228
  3. INTRON A [Suspect]
     Indication: MALIGNANT MELANOMA
     Dosage: 36 MIU;QD;IV
     Route: 042
     Dates: start: 20080310, end: 20080314
  4. INTRON A [Suspect]
     Indication: MALIGNANT MELANOMA
     Dosage: 36 MIU;QD;IV
     Route: 042
     Dates: start: 20080317, end: 20080321
  5. MOBIC [Concomitant]
  6. IMODIUM [Concomitant]
  7. XANAX [Concomitant]
  8. ASCORBIC ACID [Concomitant]
  9. SENOKOT [Concomitant]
  10. PROTONIX [Concomitant]

REACTIONS (8)
  - ALOPECIA [None]
  - COLITIS ISCHAEMIC [None]
  - FATIGUE [None]
  - HYPERHIDROSIS [None]
  - INFLUENZA LIKE ILLNESS [None]
  - NAUSEA [None]
  - PAIN OF SKIN [None]
  - PRURITUS [None]
